FAERS Safety Report 7615738-2 (Version None)
Quarter: 2011Q3

REPORT INFORMATION
  Report Type: 
  Country: None (occurrence: None)
  Receive Date: 20110711
  Receipt Date: 20110628
  Transmission Date: 20111222
  Serious: Yes (Hospitalization)
  Sender: FDA-Public Use
  Company Number: VISP-NO-1107S-0247

PATIENT
  Age: 71 Year
  Sex: Male

DRUGS (18)
  1. APROVEL (IRBESARTAN) [Concomitant]
  2. VITAMIN D [Concomitant]
  3. PULMICOT (BUDESONIDE) [Concomitant]
  4. CLOPIDOGREL BISULFATE (PLAVIX) (CLOPIDOGREL SULFATE) [Concomitant]
  5. NOVOLOG [Concomitant]
  6. AMLODIPINE [Concomitant]
  7. HYPERIUM (RILMENIDINE PHOSPHATE) [Concomitant]
  8. VICTOZA [Concomitant]
  9. VISIPAQUE [Suspect]
     Indication: FEMORAL ARTERY OCCLUSION
     Dosage: 150 ML, SINGLE DOSE, INTRAVENOUS
     Route: 042
     Dates: start: 20110314, end: 20110314
  10. PIASCLEDINE (PIAS) [Concomitant]
  11. ATORVASTATIN CALCIUM [Concomitant]
  12. CALCIPARINE [Suspect]
     Indication: FEMORAL ARTERY OCCLUSION
     Dates: start: 20110302, end: 20110313
  13. BRICANYL [Concomitant]
  14. CONTRAMAL (TRAMADOL HYDROCHLORIDE) [Concomitant]
  15. VITAMIN B12 [Concomitant]
  16. IRBESARTAN AND HYDROCHLOROTHIAZIDE [Concomitant]
  17. HEXAQUINE (HEXAQUINE) [Concomitant]
  18. NAFTIDROFURYL (NAFTIDROFURYL) [Concomitant]

REACTIONS (3)
  - PRURITUS [None]
  - EOSINOPHILIA [None]
  - TOXIC SKIN ERUPTION [None]
